FAERS Safety Report 14874348 (Version 1)
Quarter: 2018Q2

REPORT INFORMATION
  Report Type: Spontaneous
  Country: US (occurrence: US)
  Receive Date: 20180510
  Receipt Date: 20180510
  Transmission Date: 20180711
  Serious: No
  Sender: FDA-Public Use
  Company Number: US-MYLANLABS-2018M1024378

PATIENT
  Age: 25 Year
  Sex: Female

DRUGS (1)
  1. CLOBETASOL PROPIONATE FOAM [Suspect]
     Active Substance: CLOBETASOL PROPIONATE
     Indication: PRODUCT USED FOR UNKNOWN INDICATION
     Dosage: 50 G, UNK
     Route: 003
     Dates: start: 20180406

REACTIONS (3)
  - No adverse event [Unknown]
  - Product quality issue [Unknown]
  - Wrong technique in device usage process [Recovered/Resolved]

NARRATIVE: CASE EVENT DATE: 20180408
